FAERS Safety Report 22626203 (Version 1)
Quarter: 2023Q2

REPORT INFORMATION
  Report Type: Spontaneous
  Country: US (occurrence: None)
  Receive Date: 20230619
  Receipt Date: 20230619
  Transmission Date: 20230721
  Serious: Yes (Hospitalization)
  Sender: FDA-Public Use
  Company Number: None

PATIENT
  Age: 78 Year
  Sex: Male

DRUGS (1)
  1. BOSULIF [Suspect]
     Active Substance: BOSUTINIB MONOHYDRATE
     Dosage: FREQUENCY : DAILY;?
     Route: 048
     Dates: start: 20230518

REACTIONS (4)
  - Gastrointestinal haemorrhage [None]
  - Duodenal ulcer [None]
  - Therapy interrupted [None]
  - Product use issue [None]

NARRATIVE: CASE EVENT DATE: 20230518
